FAERS Safety Report 9103118 (Version 2)
Quarter: 2013Q1

REPORT INFORMATION
  Report Type: Spontaneous
  Country: US (occurrence: US)
  Receive Date: 20130218
  Receipt Date: 20130305
  Transmission Date: 20140127
  Serious: Yes (Death, Hospitalization, Other)
  Sender: FDA-Public Use
  Company Number: US-BIOGENIDEC-2013BI013365

PATIENT
  Age: 62 None
  Sex: Female

DRUGS (25)
  1. TYSABRI [Suspect]
     Indication: MULTIPLE SCLEROSIS
     Route: 042
     Dates: start: 20121203, end: 20130102
  2. LISINOPRIL [Concomitant]
  3. NORVASC [Concomitant]
  4. HYDROCHLORTHIAZIDE [Concomitant]
  5. ASPIRIN [Concomitant]
     Route: 048
  6. HYDROCODONE/APAP [Concomitant]
     Route: 048
  7. TYLENOL [Concomitant]
  8. TRICOR [Concomitant]
  9. NEURONTIN [Concomitant]
  10. RELAFEN [Concomitant]
     Route: 048
  11. PRILOSEC [Concomitant]
  12. BACLOFEN [Concomitant]
  13. MULTIVITAMIN [Concomitant]
  14. CALCIUM [Concomitant]
  15. VITAMIN B12 [Concomitant]
     Route: 058
  16. SYSTANE [Concomitant]
     Route: 031
  17. TRAZODONE [Concomitant]
  18. PROZAC [Concomitant]
  19. DIAZEPAM [Concomitant]
  20. BENADRYL [Concomitant]
  21. CLONIDINE [Concomitant]
  22. IMODIUM [Concomitant]
  23. LIDOCAINE CREAM [Concomitant]
     Route: 061
  24. CORTISONE [Concomitant]
  25. DESONIDE [Concomitant]
     Route: 061

REACTIONS (8)
  - Escherichia urinary tract infection [Unknown]
  - Klebsiella infection [Unknown]
  - Renal failure [Unknown]
  - Hypokalaemia [Unknown]
  - Hypomagnesaemia [Unknown]
  - Pneumonia aspiration [Fatal]
  - Fall [Recovered/Resolved]
  - Laceration [Unknown]
